FAERS Safety Report 5501423-X (Version None)
Quarter: 2007Q4

REPORT INFORMATION
  Report Type: 
  Country: None (occurrence: None)
  Receive Date: 20071026
  Receipt Date: 20071026
  Transmission Date: 20080405
  Serious: No
  Sender: FDA-Public Use
  Company Number: None

PATIENT
  Age: 59 Year
  Sex: Female
  Weight: 55.7 kg

DRUGS (1)
  1. VANCOMYCIN [Suspect]
     Indication: INFECTION
     Dosage: 1 GM X1 IV
     Route: 042
     Dates: start: 20070607

REACTIONS (4)
  - INFUSION RELATED REACTION [None]
  - INFUSION SITE RASH [None]
  - PRURITUS [None]
  - RASH ERYTHEMATOUS [None]
